FAERS Safety Report 23208802 (Version 1)
Quarter: 2023Q4

REPORT INFORMATION
  Report Type: Spontaneous
  Country: US (occurrence: US)
  Receive Date: 20231121
  Receipt Date: 20231121
  Transmission Date: 20240110
  Serious: No
  Sender: FDA-Public Use
  Company Number: US-KYOWAKIRIN-2023KK018170

PATIENT

DRUGS (1)
  1. CRYSVITA [Suspect]
     Active Substance: BUROSUMAB-TWZA
     Indication: Hereditary hypophosphataemic rickets
     Dosage: 1 MG/KG, 1X/4 WEEKS
     Route: 065
     Dates: start: 20190621, end: 20220803

REACTIONS (3)
  - Infection [Recovered/Resolved]
  - Soft tissue infection [Unknown]
  - Therapeutic product effect incomplete [Unknown]
